FAERS Safety Report 22160859 (Version 1)
Quarter: 2023Q1

REPORT INFORMATION
  Report Type: Spontaneous
  Country: US (occurrence: None)
  Receive Date: 20230331
  Receipt Date: 20230331
  Transmission Date: 20230417
  Serious: Yes (Hospitalization, Disabling, Other)
  Sender: FDA-Public Use
  Company Number: None

PATIENT
  Age: 65 Year
  Sex: Male
  Weight: 92.25 kg

DRUGS (7)
  1. ARTIFICIAL TEARS (POLYVINYL ALCOHOL\POVIDONE) [Suspect]
     Active Substance: POLYVINYL ALCOHOL\POVIDONE
     Indication: Basal cell carcinoma
     Dosage: OTHER QUANTITY : .5 OUNCE(S);?FREQUENCY : EVERY 8 HOURS;?
     Route: 047
     Dates: start: 20221017, end: 20221122
  2. COREG [Concomitant]
     Active Substance: CARVEDILOL
  3. Feno Fibric Acid [Concomitant]
  4. VITAMIN C [Concomitant]
     Active Substance: ASCORBIC ACID
  5. VITAMIN D [Concomitant]
     Active Substance: VITAMIN D NOS
  6. VITAMIN B12 [Concomitant]
     Active Substance: CYANOCOBALAMIN
  7. FISH OIL [Concomitant]
     Active Substance: FISH OIL

REACTIONS (4)
  - Hypoaesthesia eye [None]
  - Vision blurred [None]
  - Eye pain [None]
  - Blindness [None]

NARRATIVE: CASE EVENT DATE: 20221022
